FAERS Safety Report 7704395-2 (Version None)
Quarter: 2011Q3

REPORT INFORMATION
  Report Type: 
  Country: None (occurrence: None)
  Receive Date: 20110823
  Receipt Date: 20110816
  Transmission Date: 20111222
  Serious: Yes (Other)
  Sender: FDA-Public Use
  Company Number: US-B.I. PHARMACEUTICALS,INC./RIDGEFIELD-2011-BP-14952BP

PATIENT
  Sex: Female

DRUGS (4)
  1. PRADAXA [Suspect]
     Indication: ATRIAL FIBRILLATION
     Route: 048
     Dates: start: 20110101
  2. MULTAQ [Suspect]
     Indication: ATRIAL FIBRILLATION
     Dosage: 800 MG
     Route: 048
     Dates: start: 20110301
  3. PHENOBARBITAL TAB [Concomitant]
  4. DIOVAN [Concomitant]

REACTIONS (5)
  - FALL [None]
  - BLOOD SODIUM DECREASED [None]
  - JOINT SWELLING [None]
  - CONJUNCTIVAL HAEMORRHAGE [None]
  - OEDEMA PERIPHERAL [None]
